FAERS Safety Report 19738841 (Version 1)
Quarter: 2021Q3

REPORT INFORMATION
  Report Type: Spontaneous
  Country: US (occurrence: US)
  Receive Date: 20210823
  Receipt Date: 20210823
  Transmission Date: 20211014
  Serious: Yes (Other)
  Sender: FDA-Public Use
  Company Number: US-PFIZER INC-202101040128

PATIENT
  Age: 45 Year
  Sex: Female
  Weight: 99.77 kg

DRUGS (1)
  1. XELJANZ [Suspect]
     Active Substance: TOFACITINIB CITRATE
     Indication: RHEUMATOID ARTHRITIS
     Dosage: 5 MG, 2X/DAY
     Route: 048
     Dates: start: 201704

REACTIONS (2)
  - Adnexal torsion [Recovered/Resolved]
  - Ovarian germ cell teratoma [Recovered/Resolved]

NARRATIVE: CASE EVENT DATE: 2021
